FAERS Safety Report 11686224 (Version 2)
Quarter: 2015Q4

REPORT INFORMATION
  Report Type: Spontaneous
  Country: JP (occurrence: JP)
  Receive Date: 20151030
  Receipt Date: 20151208
  Transmission Date: 20160304
  Serious: Yes (Hospitalization)
  Sender: FDA-Public Use
  Company Number: JP-PFIZER INC-2015362193

PATIENT
  Age: 61 Year
  Sex: Female
  Weight: 50.7 kg

DRUGS (12)
  1. RENIVACE [Suspect]
     Active Substance: ENALAPRIL
     Dosage: 1.25 MG, 1X/DAY
     Route: 048
     Dates: start: 20150919, end: 20150927
  2. BROTIZOLAM [Suspect]
     Active Substance: BROTIZOLAM
     Indication: INSOMNIA
     Dosage: 0.25 MG, 1X/DAY
     Route: 048
     Dates: start: 20150909, end: 20150930
  3. PREDONINE [Concomitant]
     Active Substance: PREDNISOLONE\PREDNISOLONE ACETATE\PREDNISOLONE SODIUM SUCCINATE
     Indication: CARDIAC FAILURE CONGESTIVE
     Dosage: 30 MG IN THE MORNING AND 15 MG IN THE EVENING
     Route: 048
     Dates: start: 20150906, end: 20150913
  4. LYRICA [Suspect]
     Active Substance: PREGABALIN
     Indication: NEURALGIA
     Dosage: 25 MG, 2X/DAY
     Route: 048
     Dates: start: 20150925, end: 20150926
  5. NEXIUM [Suspect]
     Active Substance: ESOMEPRAZOLE MAGNESIUM
     Indication: GASTRIC ULCER
     Dosage: 20 MG, 1X/DAY
     Route: 048
     Dates: start: 20150904, end: 20151001
  6. MAINTATE [Suspect]
     Active Substance: BISOPROLOL FUMARATE
     Dosage: 2.5 MG, 1X/DAY
     Route: 048
     Dates: start: 20150925, end: 20150929
  7. PREDONINE [Concomitant]
     Active Substance: PREDNISOLONE\PREDNISOLONE ACETATE\PREDNISOLONE SODIUM SUCCINATE
     Dosage: 25 MG IN THE MORNING AND 10 MG IN THE EVENING
     Route: 048
     Dates: start: 20150921, end: 20151005
  8. MAINTATE [Suspect]
     Active Substance: BISOPROLOL FUMARATE
     Dosage: 1.25 MG, 1X/DAY
     Route: 048
     Dates: start: 20150918, end: 20150921
  9. MAINTATE [Suspect]
     Active Substance: BISOPROLOL FUMARATE
     Dosage: 1.875 MG, 1X/DAY
     Route: 048
     Dates: start: 20150922, end: 20150924
  10. PREDONINE [Concomitant]
     Active Substance: PREDNISOLONE\PREDNISOLONE ACETATE\PREDNISOLONE SODIUM SUCCINATE
     Dosage: 30 MG IN THE MORNING AND 10 MG IN THE EVENING
     Route: 048
     Dates: start: 20150914, end: 20150920
  11. MAINTATE [Suspect]
     Active Substance: BISOPROLOL FUMARATE
     Indication: CARDIAC FAILURE
     Dosage: 0.625 MG, 1X/DAY
     Route: 048
     Dates: start: 20150916, end: 20150917
  12. MARZULENE S COMBINATION [Suspect]
     Active Substance: GLUTAMINE\SODIUM GUALENATE
     Indication: GASTRIC ULCER
     Dosage: 0.5 G, 3X/DAY
     Route: 048
     Dates: start: 20150829, end: 20151005

REACTIONS (1)
  - Toxic epidermal necrolysis [Recovering/Resolving]

NARRATIVE: CASE EVENT DATE: 20150926
